FAERS Safety Report 21299979 (Version 5)
Quarter: 2022Q3

REPORT INFORMATION
  Report Type: Spontaneous
  Country: JP (occurrence: None)
  Receive Date: 20220906
  Receipt Date: 20220929
  Transmission Date: 20221027
  Serious: Yes (Life-Threatening, Hospitalization, Other)
  Sender: FDA-Public Use
  Company Number: 2022A266429

PATIENT
  Age: 74 Year
  Sex: Female
  Weight: 48 kg

DRUGS (4)
  1. LYNPARZA [Suspect]
     Active Substance: OLAPARIB
     Indication: Ovarian cancer recurrent
     Dosage: NUMBER OF SEPARATE DOSAGES UNKNOWN
     Route: 048
     Dates: start: 20210824, end: 20210907
  2. LYNPARZA [Suspect]
     Active Substance: OLAPARIB
     Indication: Ovarian cancer recurrent
     Dosage: NUMBER OF SEPARATE DOSAGES UNKNOWN
     Route: 048
     Dates: start: 20210908, end: 20211006
  3. AVASTIN [Concomitant]
     Active Substance: BEVACIZUMAB
     Indication: Ovarian cancer recurrent
     Dosage: DOSE UNKNOWN
     Route: 065
     Dates: start: 2017, end: 202008
  4. MINERAL PREPARATIONS [Concomitant]
     Dosage: DOSE UNKNOWN
     Route: 065
     Dates: start: 20210812

REACTIONS (7)
  - Pancytopenia [Not Recovered/Not Resolved]
  - Acute febrile neutrophilic dermatosis [Recovered/Resolved]
  - Drug eruption [Recovered/Resolved]
  - Platelet count decreased [Not Recovered/Not Resolved]
  - Myelodysplastic syndrome [Not Recovered/Not Resolved]
  - Erythema nodosum [Recovered/Resolved]
  - Performance status decreased [Recovering/Resolving]

NARRATIVE: CASE EVENT DATE: 20220510
